FAERS Safety Report 15596660 (Version 1)
Quarter: 2018Q4

REPORT INFORMATION
  Report Type: Spontaneous
  Country: AT (occurrence: AT)
  Receive Date: 20181107
  Receipt Date: 20181107
  Transmission Date: 20190205
  Serious: Yes (Other)
  Sender: FDA-Public Use
  Company Number: PHHY2018AT148121

PATIENT
  Age: 29 Year
  Sex: Male

DRUGS (1)
  1. OSPAMOX [Suspect]
     Active Substance: AMOXICILLIN
     Indication: BORRELIA INFECTION
     Dosage: UNK
     Route: 048

REACTIONS (8)
  - Eyelid oedema [Recovered/Resolved]
  - Type I hypersensitivity [Recovered/Resolved]
  - Pruritus generalised [Recovered/Resolved]
  - Chills [Recovered/Resolved]
  - Chest discomfort [Recovered/Resolved]
  - Conjunctival irritation [Recovered/Resolved]
  - Dyspnoea [Recovered/Resolved]
  - Erythema [Recovered/Resolved]

NARRATIVE: CASE EVENT DATE: 20180503
